FAERS Safety Report 22101054 (Version 1)
Quarter: 2023Q1

REPORT INFORMATION
  Report Type: Report from Study
  Country: EG (occurrence: EG)
  Receive Date: 20230316
  Receipt Date: 20230316
  Transmission Date: 20230418
  Serious: Yes (Other)
  Sender: FDA-Public Use
  Company Number: EG-002147023-NVSC2023EG056878

PATIENT
  Age: 1 Year
  Sex: Female

DRUGS (4)
  1. TASIGNA [Suspect]
     Active Substance: NILOTINIB
     Indication: Chronic myeloid leukaemia
     Dosage: MOTHER^S DOSE: 150 MG (2 YEARS AND 7 OR 8 MONTHS AGO)
     Route: 048
  2. TASIGNA [Suspect]
     Active Substance: NILOTINIB
     Dosage: MOTHER^S DOSE: 200 MG (WCOULDN^T REMEMBER)
     Route: 048
     Dates: end: 202204
  3. TASIGNA [Suspect]
     Active Substance: NILOTINIB
     Dosage: MOTHER^S DOSE: 600 MG, QD (4 CAPS OF TASIGNA 150MG THEN 3 CAPS OF -TASIGNA 200MG)
     Route: 065
  4. VIDROP [Concomitant]
     Indication: Vitamin supplementation
     Dosage: 4 DRP, QD (STARTED AFTER BIRTH BY ABOUT A WEEK AND ONGOING (BUT NOT REGULARLY)
     Route: 048

REACTIONS (2)
  - Asthenia [Not Recovered/Not Resolved]
  - Balance disorder [Not Recovered/Not Resolved]

NARRATIVE: CASE EVENT DATE: 20221231
